FAERS Safety Report 7898627-8 (Version None)
Quarter: 2011Q4

REPORT INFORMATION
  Report Type: 
  Country: None (occurrence: None)
  Receive Date: 20111107
  Receipt Date: 20111107
  Transmission Date: 20120403
  Serious: Yes (Other)
  Sender: FDA-Public Use
  Company Number: None

PATIENT
  Age: 28 Year
  Sex: Female
  Weight: 65.317 kg

DRUGS (2)
  1. EXTERNAL VULVAR CREAM [Concomitant]
     Indication: FUNGAL INFECTION
     Dosage: A FINGER TIPS WORTH
     Route: 061
     Dates: start: 20111024, end: 20111024
  2. MONISTAT 1 COMBINATION PACK [Suspect]
     Indication: FUNGAL INFECTION
     Dosage: 1200MG
     Route: 067
     Dates: start: 20111024, end: 20111024

REACTIONS (2)
  - VULVOVAGINAL BURNING SENSATION [None]
  - DRUG INEFFECTIVE [None]
